FAERS Safety Report 20016248 (Version 1)
Quarter: 2021Q4

REPORT INFORMATION
  Report Type: Spontaneous
  Country: US (occurrence: None)
  Receive Date: 20211103
  Receipt Date: 20211103
  Transmission Date: 20220303
  Serious: Yes (Hospitalization)
  Sender: FDA-Public Use
  Company Number: None

PATIENT
  Age: 40 Year
  Sex: Male
  Weight: 93.6 kg

DRUGS (19)
  1. CASIRIVIMAB\IMDEVIMAB [Suspect]
     Active Substance: CASIRIVIMAB\IMDEVIMAB
     Indication: COVID-19
     Dosage: OTHER FREQUENCY : ONCE;?
     Route: 042
     Dates: start: 20211028, end: 20211028
  2. DEXAMETHASONE [Concomitant]
     Active Substance: DEXAMETHASONE
     Dates: start: 20211029, end: 20211101
  3. REMDESIVIR [Concomitant]
     Active Substance: REMDESIVIR
     Dates: start: 20211030
  4. BENZONATATE [Concomitant]
     Active Substance: BENZONATATE
     Dates: start: 20211028
  5. BENADRYL [Concomitant]
     Active Substance: DIPHENHYDRAMINE HYDROCHLORIDE
     Dates: start: 20210924
  6. ACETAMINOPHEN [Concomitant]
     Active Substance: ACETAMINOPHEN
     Dates: start: 20211027, end: 20211101
  7. GUAIFENESIN [Concomitant]
     Active Substance: GUAIFENESIN
     Dates: start: 20211028
  8. CYCLOPHOSPHAMIDE [Concomitant]
     Active Substance: CYCLOPHOSPHAMIDE
     Dates: start: 20210924
  9. AMIODARONE [Concomitant]
     Active Substance: AMIODARONE
     Dates: start: 20211028, end: 20211101
  10. ENOXAPARIN [Concomitant]
     Active Substance: ENOXAPARIN
     Dates: start: 20211028, end: 20211101
  11. SERTRALINE [Concomitant]
     Active Substance: SERTRALINE HYDROCHLORIDE
     Dates: start: 20210927
  12. ALLOPURINOL [Concomitant]
     Active Substance: ALLOPURINOL
     Dates: start: 20211028, end: 20211101
  13. PIPERACILLIN AND TAZOBACTAM [Concomitant]
     Active Substance: PIPERACILLIN SODIUM\TAZOBACTAM SODIUM
     Dates: start: 20211027, end: 20211028
  14. VANCOMYCIN [Concomitant]
     Active Substance: VANCOMYCIN
     Dates: start: 20211027, end: 20211029
  15. RITUXIMAB [Concomitant]
     Active Substance: RITUXIMAB
     Dates: start: 20210924
  16. PREDNISONE [Concomitant]
     Active Substance: PREDNISONE
     Dates: start: 20211021
  17. PEGFILGRASTIM-JMDB [Concomitant]
     Active Substance: PEGFILGRASTIM-JMDB
     Dates: start: 20210927
  18. DOXORUBICIN [Concomitant]
     Active Substance: DOXORUBICIN
     Dates: start: 20210924
  19. VINCRISTINE [Concomitant]
     Active Substance: VINCRISTINE
     Dates: start: 20210813

REACTIONS (3)
  - Pyrexia [None]
  - Myalgia [None]
  - Hypoxia [None]

NARRATIVE: CASE EVENT DATE: 20211030
